FAERS Safety Report 4761058-3 (Version None)
Quarter: 2005Q3

REPORT INFORMATION
  Report Type: 
  Country: None (occurrence: None)
  Receive Date: 20050901
  Receipt Date: 20050818
  Transmission Date: 20060218
  Serious: Yes (Hospitalization)
  Sender: FDA-Public Use
  Company Number: 200504IM000128

PATIENT
  Age: 57 Year
  Sex: Male
  Weight: 89.5 kg

DRUGS (5)
  1. INTERFERON ALFACON-1 [Suspect]
     Indication: HEPATITIS C
     Dosage: 15 UG, QD, SUBCUTANEOUS
     Route: 058
     Dates: start: 20041026, end: 20050403
  2. RIBAVIRIN [Suspect]
     Indication: HEPATITIS C
     Dosage: 600 MG, QD, ORAL
     Route: 048
     Dates: start: 20041026, end: 20050403
  3. GLUCOPHAGE [Concomitant]
  4. ATENOLOL [Concomitant]
  5. FLEXERIL [Concomitant]

REACTIONS (13)
  - ACTIVATED PARTIAL THROMBOPLASTIN TIME PROLONGED [None]
  - ALPHA 1 FOETOPROTEIN INCREASED [None]
  - ASPARTATE AMINOTRANSFERASE INCREASED [None]
  - BLOOD PRESSURE DIASTOLIC DECREASED [None]
  - GILBERT'S SYNDROME [None]
  - HEART RATE INCREASED [None]
  - HEPATIC CIRRHOSIS [None]
  - HYPERKALAEMIA [None]
  - HYPONATRAEMIA [None]
  - LUNG CONSOLIDATION [None]
  - OBSTRUCTIVE AIRWAYS DISORDER [None]
  - PNEUMONIA [None]
  - RHABDOMYOLYSIS [None]
